FAERS Safety Report 5630937-7 (Version None)
Quarter: 2008Q1

REPORT INFORMATION
  Report Type: 
  Country: None (occurrence: None)
  Receive Date: 20080219
  Receipt Date: 20080212
  Transmission Date: 20080703
  Serious: Yes (Hospitalization)
  Sender: FDA-Public Use
  Company Number: FR-AVENTIS-200810587FR

PATIENT
  Age: 86 Year
  Sex: Male

DRUGS (6)
  1. LASILIX                            /00032601/ [Suspect]
     Indication: RESPIRATORY FAILURE
     Route: 048
     Dates: start: 20070720, end: 20070801
  2. LASILIX                            /00032601/ [Suspect]
     Route: 048
     Dates: start: 20070101
  3. TAVANIC [Concomitant]
     Indication: RESPIRATORY FAILURE
     Route: 048
     Dates: start: 20070720, end: 20070801
  4. MONO-TILDIEM [Concomitant]
     Route: 048
  5. IRBESARTAN [Concomitant]
     Route: 048
  6. VELBE [Concomitant]
     Indication: KAPOSI'S SARCOMA
     Route: 042
     Dates: start: 20070704, end: 20070803

REACTIONS (1)
  - ECZEMA [None]
